FAERS Safety Report 8144295 (Version 2)
Quarter: 2013Q4

REPORT INFORMATION
  Report Type: Spontaneous
  Country: US (occurrence: US)
  Receive Date: 20110920
  Receipt Date: 20131112
  Transmission Date: 20140711
  Serious: Yes (Other)
  Sender: FDA-Public Use
  Company Number: US-ROCHE-803116

PATIENT
  Age: 14 Year
  Sex: Female
  Weight: 56.75 kg

DRUGS (10)
  1. ACCUTANE [Suspect]
     Indication: ACNE
     Route: 048
     Dates: start: 2004, end: 2005
  2. ACCUTANE [Suspect]
     Route: 048
  3. ACCUTANE [Suspect]
     Route: 048
     Dates: start: 2007, end: 2007
  4. ACCUTANE [Suspect]
     Route: 048
  5. SOTRET [Suspect]
     Indication: ACNE
     Route: 065
     Dates: start: 2006, end: 2006
  6. AMNESTEEM [Suspect]
     Indication: ACNE
     Route: 065
     Dates: start: 200611, end: 200702
  7. AMNESTEEM [Suspect]
     Route: 065
     Dates: start: 200901, end: 200906
  8. DESOGESTREL [Concomitant]
  9. ETHINYL ESTRADIOL [Concomitant]
  10. VALTREX [Concomitant]

REACTIONS (10)
  - Crohn^s disease [Unknown]
  - Colitis ulcerative [Unknown]
  - Inflammatory bowel disease [Unknown]
  - Anxiety [Unknown]
  - Irritable bowel syndrome [Unknown]
  - Headache [Unknown]
  - Dry skin [Unknown]
  - Chapped lips [Unknown]
  - Aspartate aminotransferase increased [Unknown]
  - Red blood cell sedimentation rate increased [Unknown]
